FAERS Safety Report 6183035-0 (Version None)
Quarter: 2009Q2

REPORT INFORMATION
  Report Type: 
  Country: None (occurrence: None)
  Receive Date: 20090507
  Receipt Date: 20090501
  Transmission Date: 20091009
  Serious: Yes (Other)
  Sender: FDA-Public Use
  Company Number: US-ASTRAZENECA-2009UW04216

PATIENT
  Age: 17566 Day
  Sex: Female
  Weight: 111.1 kg

DRUGS (8)
  1. SEROQUEL [Suspect]
     Dosage: 100 MG TO 400 MG
     Route: 048
     Dates: start: 20070101, end: 20071001
  2. ABILIFY [Concomitant]
     Dates: start: 20081001
  3. RISPERDAL [Concomitant]
     Dosage: 0.5 MG TO 1 MG
     Dates: start: 20080101, end: 20081001
  4. LORAZEPAM [Concomitant]
     Dates: start: 20070101, end: 20080201
  5. BUSPIRONE HCL [Concomitant]
     Dosage: 10 TO 15 MG
     Dates: start: 20070901, end: 20080301
  6. EFFEXOR [Concomitant]
     Dates: start: 20070101, end: 20080301
  7. TRAZODONE HCL [Concomitant]
     Dates: start: 20070101, end: 20070701
  8. METHADONE [Concomitant]
     Dates: start: 20070101, end: 20071201

REACTIONS (4)
  - DEMENTIA [None]
  - DIABETES MELLITUS [None]
  - HYPERGLYCAEMIA [None]
  - NEUROPATHY PERIPHERAL [None]
